FAERS Safety Report 4373397-9 (Version None)
Quarter: 2004Q2

REPORT INFORMATION
  Report Type: 
  Country: None (occurrence: None)
  Receive Date: 20040607
  Receipt Date: 20030529
  Transmission Date: 20050107
  Serious: Yes (Other)
  Sender: FDA-Public Use
  Company Number: 339202

PATIENT
  Age: 15 Year
  Sex: Male

DRUGS (1)
  1. ACCUTANE [Suspect]
     Indication: ACNE
     Dosage: 50 MG DAILY   2 PER DAY   ORAL
     Route: 048
     Dates: start: 20030210, end: 20030529

REACTIONS (5)
  - COLOUR BLINDNESS [None]
  - HEADACHE [None]
  - MYOPIA [None]
  - VISION BLURRED [None]
  - VISUAL DISTURBANCE [None]
